FAERS Safety Report 9062718 (Version 1)
Quarter: 2013Q1

REPORT INFORMATION
  Report Type: Report from Study
  Country: US (occurrence: US)
  Receive Date: 20130129
  Receipt Date: 20130129
  Transmission Date: 20140127
  Serious: No
  Sender: FDA-Public Use
  Company Number: US-ABBOTT-12P-163-0949112-00

PATIENT
  Sex: Female
  Weight: 46.76 kg

DRUGS (1)
  1. HUMIRA 40 MG/0.8 ML PEN [Suspect]
     Indication: CROHN^S DISEASE

REACTIONS (4)
  - Abdominal discomfort [Recovered/Resolved]
  - Injection site reaction [Recovered/Resolved]
  - Injection site nodule [Recovered/Resolved]
  - Injection site bruising [Recovered/Resolved]
